FAERS Safety Report 5425222-2 (Version None)
Quarter: 2007Q3

REPORT INFORMATION
  Report Type: 
  Country: None (occurrence: None)
  Receive Date: 20070824
  Receipt Date: 20070817
  Transmission Date: 20080115
  Serious: Yes (Other)
  Sender: FDA-Public Use
  Company Number: HQWYE830204AUG04

PATIENT
  Sex: Female
  Weight: 64.92 kg

DRUGS (4)
  1. PREMPRO [Suspect]
     Dosage: 0.625MG/2.5MG DAILY
     Route: 048
     Dates: start: 19950101, end: 20011101
  2. PREMARIN [Suspect]
     Dosage: 0.625MG DAILY
     Route: 048
     Dates: start: 19911119, end: 20020701
  3. MEDROXYPROGESTERONE [Suspect]
     Dosage: UNKNOWN
     Route: 048
     Dates: start: 19940101, end: 19950101
  4. PROVERA [Suspect]
     Route: 048
     Dates: start: 19911101, end: 19950101

REACTIONS (8)
  - BLADDER CANCER [None]
  - BREAST CANCER METASTATIC [None]
  - METASTASES TO GASTROINTESTINAL TRACT [None]
  - METASTASES TO LYMPH NODES [None]
  - METASTASES TO PANCREAS [None]
  - OESTROGEN RECEPTOR ASSAY POSITIVE [None]
  - PROGESTERONE RECEPTOR ASSAY POSITIVE [None]
  - RETROPERITONEAL FIBROSIS [None]
